FAERS Safety Report 9697829 (Version 2)
Quarter: 2013Q4

REPORT INFORMATION
  Report Type: Spontaneous
  Country: US (occurrence: US)
  Receive Date: 20131120
  Receipt Date: 20131129
  Transmission Date: 20140711
  Serious: No
  Sender: FDA-Public Use
  Company Number: US-PFIZER INC-2013330319

PATIENT
  Sex: Female

DRUGS (3)
  1. LYRICA [Suspect]
     Dosage: 50 MG, UNK
     Dates: start: 201311
  2. CYMBALTA [Concomitant]
     Dosage: UNKNOWN
  3. FENTANYL [Concomitant]
     Dosage: UNKNOWN

REACTIONS (2)
  - Pain [Not Recovered/Not Resolved]
  - Ulcer [Unknown]
